FAERS Safety Report 8396088-6 (Version None)
Quarter: 2012Q2

REPORT INFORMATION
  Report Type: 
  Country: None (occurrence: None)
  Receive Date: 20120530
  Receipt Date: 20120522
  Transmission Date: 20120825
  Serious: Yes (Disabling)
  Sender: FDA-Public Use
  Company Number: BR-ROCHE-1024155

PATIENT
  Sex: Female
  Weight: 66 kg

DRUGS (6)
  1. FOLIC ACID [Concomitant]
     Dates: start: 20101129
  2. OMEPRAZOLE [Concomitant]
     Dates: start: 20110613
  3. AMITRIPTYLINE HCL [Concomitant]
     Dates: start: 20110222
  4. ACTEMRA [Suspect]
     Indication: RHEUMATOID ARTHRITIS
     Dosage: LAST DOSE PRIOR TO SAE 04 OCT 2011,DOSE:BLINDED
     Route: 042
     Dates: start: 20101129, end: 20111101
  5. METHOTREXATE [Suspect]
     Indication: RHEUMATOID ARTHRITIS
     Dosage: LAST DOSE PRIOR TO SAE 06 DEC 2011, DOSE:BLINDED
     Route: 048
     Dates: start: 20101129
  6. PREDNISONE TAB [Concomitant]
     Dates: start: 20090901

REACTIONS (1)
  - CEREBRAL ISCHAEMIA [None]
